FAERS Safety Report 7893562-3 (Version None)
Quarter: 2011Q4

REPORT INFORMATION
  Report Type: 
  Country: None (occurrence: None)
  Receive Date: 20111104
  Receipt Date: 20111026
  Transmission Date: 20120403
  Serious: Yes (Other)
  Sender: FDA-Public Use
  Company Number: FR-JNJFOC-20111009378

PATIENT
  Age: 56 Year
  Sex: Female

DRUGS (9)
  1. TUBERSOL [Suspect]
     Indication: PRODUCT USED FOR UNKNOWN INDICATION
     Route: 058
  2. REMICADE [Suspect]
     Dosage: 10TH INFUSION
     Route: 042
     Dates: start: 20111011, end: 20111011
  3. XANAX [Concomitant]
     Route: 065
  4. PREDNISONE [Concomitant]
     Route: 065
  5. SOLU-MEDROL [Concomitant]
     Indication: PREMEDICATION
     Route: 065
     Dates: start: 20111011
  6. REMICADE [Suspect]
     Indication: RHEUMATOID ARTHRITIS
     Dosage: 10TH INFUSION
     Route: 042
  7. PANTOPRAZOLE SODIUM [Concomitant]
     Route: 065
  8. TRAMADOL HCL [Concomitant]
     Route: 065
  9. ESCITALOPRAM OXALATE [Concomitant]
     Route: 065

REACTIONS (4)
  - SHOCK [None]
  - INFUSION RELATED REACTION [None]
  - ANGIOEDEMA [None]
  - DRUG INEFFECTIVE [None]
